FAERS Safety Report 9633591 (Version 1)
Quarter: 2013Q4

REPORT INFORMATION
  Report Type: Spontaneous
  Country: DE (occurrence: None)
  Receive Date: 20131017
  Receipt Date: 20131017
  Transmission Date: 20140711
  Serious: No
  Sender: FDA-Public Use
  Company Number: ACO_39063_2013

PATIENT
  Age: 45 Year
  Sex: Female

DRUGS (1)
  1. FAMPYRA (DALFAMPRIDINE) TABLET, 10MG [Suspect]
     Indication: MULTIPLE SCLEROSIS
     Route: 048
     Dates: start: 201110

REACTIONS (5)
  - Palpitations [None]
  - Hypertension [None]
  - Dyspnoea [None]
  - Appendicitis [None]
  - Anaesthetic complication [None]
